FAERS Safety Report 6568230-0 (Version None)
Quarter: 2010Q1

REPORT INFORMATION
  Report Type: 
  Country: None (occurrence: None)
  Receive Date: 20100203
  Receipt Date: 20100125
  Transmission Date: 20100710
  Serious: Yes (Death, Other)
  Sender: FDA-Public Use
  Company Number: US-ELI_LILLY_AND_COMPANY-US201001000502

PATIENT
  Sex: Female

DRUGS (14)
  1. FORTEO [Suspect]
     Indication: OSTEOPOROSIS
     Dosage: 20 UG, DAILY (1/D)
     Route: 058
     Dates: start: 20090901
  2. MORPHINE [Concomitant]
     Dosage: 60 MG, 3/D
  3. MORPHINE [Concomitant]
     Indication: PAIN
     Dosage: 15 MG, OTHER
  4. NORCO [Concomitant]
     Indication: PAIN
     Dosage: UNK, AS NEEDED
  5. SINGULAIR [Concomitant]
     Dosage: 10 MG, DAILY (1/D)
     Route: 065
  6. REGLAN [Concomitant]
     Indication: NAUSEA
     Dosage: 10 MG, AS NEEDED
  7. SOMA [Concomitant]
     Indication: MUSCLE SPASMS
     Dosage: 350 MG, AS NEEDED
  8. IRON [Concomitant]
     Dosage: UNK, DAILY (1/D)
  9. IBUPROFEN [Concomitant]
     Dosage: 800 MG, 3/D
  10. ALBUTEROL [Concomitant]
     Dosage: UNK, AS NEEDED
  11. SEROQUEL [Concomitant]
     Dosage: 400 MG, DAILY (1/D)
  12. SYMBICORT [Concomitant]
     Dosage: 160 MG, 2/D
  13. AMBIEN CR [Concomitant]
     Dosage: 12.5 MG, DAILY (1/D)
  14. PRISTIQ [Concomitant]
     Dosage: 50 MG, DAILY (1/D)
     Route: 065

REACTIONS (2)
  - ASPIRATION [None]
  - DEATH [None]
